FAERS Safety Report 11933698 (Version 3)
Quarter: 2016Q1

REPORT INFORMATION
  Report Type: Report from Study
  Country: JP (occurrence: JP)
  Receive Date: 20160121
  Receipt Date: 20160215
  Transmission Date: 20160526
  Serious: Yes (Hospitalization)
  Sender: FDA-Public Use
  Company Number: JP-ROCHE-1697310

PATIENT
  Age: 48 Year
  Sex: Female
  Weight: 55 kg

DRUGS (4)
  1. DENOTAS [Concomitant]
     Active Substance: CALCIUM CARBONATE\CHOLECALCIFEROL\MAGNESIUM CARBONATE
     Indication: PROPHYLAXIS
     Route: 048
     Dates: start: 20150828, end: 20160105
  2. BEVACIZUMAB [Suspect]
     Active Substance: BEVACIZUMAB
     Indication: BREAST CANCER
     Route: 041
     Dates: start: 20150828, end: 20151225
  3. PACLITAXEL. [Suspect]
     Active Substance: PACLITAXEL
     Indication: BREAST CANCER
     Dosage: 3 WEEKS ADMINISTRATION FOLLOWED BY 1 WEEK REST
     Route: 041
     Dates: start: 20150828, end: 20151225
  4. RANMARK [Concomitant]
     Active Substance: DENOSUMAB
     Dosage: DOSAGE IS UNCERTAIN.
     Route: 065

REACTIONS (2)
  - Subarachnoid haemorrhage [Recovered/Resolved]
  - Ruptured cerebral aneurysm [Recovered/Resolved]

NARRATIVE: CASE EVENT DATE: 20160129
